FAERS Safety Report 6203549-4 (Version None)
Quarter: 2009Q2

REPORT INFORMATION
  Report Type: 
  Country: None (occurrence: None)
  Receive Date: 20090527
  Receipt Date: 20090525
  Transmission Date: 20091009
  Serious: Yes (Life-Threatening, Hospitalization, Other)
  Sender: FDA-Public Use
  Company Number: PHHY2009DK20083

PATIENT
  Sex: Female
  Weight: 70 kg

DRUGS (4)
  1. LEPONEX [Suspect]
     Indication: PSYCHOTIC DISORDER
     Dosage: 150 MG, DAILY
     Route: 048
     Dates: start: 20081127
  2. LEPONEX [Suspect]
     Dosage: 600 MG, DAILY
     Route: 048
     Dates: start: 20090127, end: 20090307
  3. DIANE MITE [Concomitant]
     Indication: ORAL CONTRACEPTION
     Dosage: 1 DF, QD
     Route: 048
     Dates: end: 20090309
  4. TRUXAL [Concomitant]
     Indication: DEPRESSION
     Dosage: 50 MG, PRN
     Dates: end: 20090307

REACTIONS (7)
  - ACUTE HEPATIC FAILURE [None]
  - COMA HEPATIC [None]
  - INFECTION [None]
  - LIVER DISORDER [None]
  - MECHANICAL VENTILATION [None]
  - PYREXIA [None]
  - URINARY TRACT INFECTION [None]
